APPROVED DRUG PRODUCT: NALOXONE HYDROCHLORIDE
Active Ingredient: NALOXONE HYDROCHLORIDE
Strength: 0.4MG/ML
Dosage Form/Route: INJECTABLE;INJECTION
Application: A070649 | Product #001
Applicant: ABRAXIS PHARMACEUTICAL PRODUCTS
Approved: Nov 17, 1986 | RLD: No | RS: No | Type: DISCN